FAERS Safety Report 4643374-9 (Version None)
Quarter: 2005Q2

REPORT INFORMATION
  Report Type: 
  Country: None (occurrence: None)
  Receive Date: 20050421
  Receipt Date: 20050405
  Transmission Date: 20051028
  Serious: Yes (Death)
  Sender: FDA-Public Use
  Company Number: MC200500361

PATIENT
  Age: 44 Year
  Sex: Female

DRUGS (1)
  1. ANGIOMAX [Suspect]
     Indication: STENT PLACEMENT
     Dates: start: 20050101, end: 20050101

REACTIONS (2)
  - POST PROCEDURAL COMPLICATION [None]
  - VASCULAR INJURY [None]
